FAERS Safety Report 16030225 (Version 1)
Quarter: 2019Q2

REPORT INFORMATION
  Report Type: Spontaneous
  Country: US (occurrence: US)
  Receive Date: 20190304
  Receipt Date: 20190304
  Transmission Date: 20190711
  Serious: Yes (Life-Threatening, Hospitalization, Disabling, Other)
  Sender: FDA-Public Use
  Company Number: None

PATIENT
  Age: 50 Year
  Sex: Male
  Weight: 97.2 kg

DRUGS (4)
  1. TRUVADA [Suspect]
     Active Substance: EMTRICITABINE\TENOFOVIR DISOPROXIL FUMARATE
     Indication: HIV INFECTION
     Dosage: ?          QUANTITY:1 TABLET(S);?
     Route: 048
  2. CENTRUM MULTIVITAMINS [Concomitant]
     Active Substance: VITAMINS
  3. BIKTARVY [Concomitant]
     Active Substance: BICTEGRAVIR SODIUM\EMTRICITABINE\TENOFOVIR ALAFENAMIDE FUMARATE
  4. GINSENG [Concomitant]
     Active Substance: ASIAN GINSENG

REACTIONS (9)
  - Musculoskeletal stiffness [None]
  - Penile discharge [None]
  - Performance status decreased [None]
  - Weight decreased [None]
  - Urinary retention [None]
  - Pain in extremity [None]
  - Renal failure [None]
  - Loss of consciousness [None]
  - Urinary tract infection [None]
